FAERS Safety Report 6935033-4 (Version None)
Quarter: 2010Q3

REPORT INFORMATION
  Report Type: 
  Country: None (occurrence: None)
  Receive Date: 20100822
  Receipt Date: 20100810
  Transmission Date: 20110219
  Serious: Yes (Other)
  Sender: FDA-Public Use
  Company Number: PHHO2010JP07514

PATIENT
  Sex: Female

DRUGS (27)
  1. CERTICAN [Suspect]
     Indication: RENAL TRANSPLANT
     Dosage: UNK
     Route: 048
     Dates: start: 20081113
  2. MEDROL [Interacting]
     Indication: RENAL TRANSPLANT
     Dosage: 20 MG, BID
     Route: 048
     Dates: start: 20081121, end: 20081125
  3. MEDROL [Interacting]
     Dosage: 16 MG, BID
     Route: 048
     Dates: start: 20081126, end: 20081130
  4. MEDROL [Interacting]
     Dosage: 12 MG, BID
     Route: 048
     Dates: start: 20081201, end: 20081205
  5. MEDROL [Interacting]
     Dosage: 8 MG, BID
     Route: 048
     Dates: start: 20081206, end: 20081210
  6. MEDROL [Interacting]
     Dosage: 4 MG, BID
     Route: 048
     Dates: start: 20081211, end: 20091110
  7. STEROIDS NOS [Suspect]
  8. SOLU-MEDROL [Concomitant]
     Dosage: 80 MG, QD
     Route: 042
     Dates: start: 20081114, end: 20081114
  9. SOLU-MEDROL [Concomitant]
     Dosage: 60 MG, QD
     Route: 042
     Dates: start: 20081115, end: 20081117
  10. SOLU-MEDROL [Concomitant]
     Dosage: 40 MG, QD
     Route: 042
     Dates: start: 20081118, end: 20081120
  11. PRIDOL [Concomitant]
     Dosage: 125 MG, QD
     Route: 042
     Dates: start: 20081112, end: 20081112
  12. PRIDOL [Concomitant]
     Dosage: 100 MG, QD
     Route: 042
     Dates: start: 20081113, end: 20081113
  13. SANDIMMUNE [Concomitant]
     Dosage: 70 MG, UNK
     Route: 042
     Dates: start: 20081113, end: 20081115
  14. SANDIMMUNE [Concomitant]
     Dosage: 43.75 MG, UNK
     Route: 042
     Dates: start: 20081116, end: 20081116
  15. NEORAL [Concomitant]
     Indication: RENAL TRANSPLANT
  16. SIMULECT [Concomitant]
     Indication: RENAL TRANSPLANT
  17. ADRENERGIC DRUGS [Concomitant]
     Indication: RENAL TRANSPLANT
  18. NORVASC [Concomitant]
     Indication: HYPERTENSION
     Dosage: UNK
     Dates: start: 20091126
  19. ALOSENN [Concomitant]
     Indication: CONSTIPATION
     Dosage: UNK
     Dates: start: 20091117
  20. TAGAMET [Concomitant]
     Indication: PROPHYLAXIS AGAINST GASTROINTESTINAL ULCER
     Dosage: UNK
     Dates: start: 20081112
  21. MYSLEE [Concomitant]
     Indication: INSOMNIA
     Dosage: UNK
     Dates: start: 20091116
  22. MEVALOTIN [Concomitant]
     Indication: HYPERLIPIDAEMIA
     Dosage: UNK
     Dates: start: 20090106
  23. YODEL [Concomitant]
     Indication: CONSTIPATION
     Dosage: UNK
     Dates: start: 20091116
  24. BENZALKONIUM CHLORIDE [Concomitant]
     Indication: BLADDER CATHETERISATION
     Dosage: UNK
     Dates: start: 20081121
  25. DEPAS [Concomitant]
     Indication: INSOMNIA
     Dosage: UNK
     Dates: start: 20090411
  26. LENDORMIN [Concomitant]
     Indication: INSOMNIA
     Dosage: UNK
     Dates: start: 20100302
  27. ASPIRIN [Concomitant]

REACTIONS (5)
  - CATARACT [None]
  - DRUG INTERACTION [None]
  - INTRAOCULAR LENS IMPLANT [None]
  - VISION BLURRED [None]
  - VISUAL IMPAIRMENT [None]
